FAERS Safety Report 6904597-9 (Version None)
Quarter: 2010Q3

REPORT INFORMATION
  Report Type: 
  Country: None (occurrence: None)
  Receive Date: 20100804
  Receipt Date: 20090616
  Transmission Date: 20110219
  Serious: No
  Sender: FDA-Public Use
  Company Number: US-PFIZER INC-2009191581

PATIENT
  Sex: Female
  Weight: 99.8 kg

DRUGS (10)
  1. LYRICA [Suspect]
     Indication: HEREDITARY DISORDER
     Dosage: 25 MG, 1X/DAY
     Dates: start: 20090207
  2. LYRICA [Suspect]
     Indication: NEUROTRANSMITTER LEVEL ALTERED
  3. SINEMET [Concomitant]
     Indication: PARKINSON'S DISEASE
     Dosage: UNK
  4. GABITRIL [Concomitant]
     Indication: CONVULSION
     Dosage: UNK
  5. MIRAPEX [Concomitant]
     Indication: PARKINSON'S DISEASE
     Dosage: UNK
  6. PROVIGIL [Concomitant]
     Dosage: UNK
  7. CARBATROL [Concomitant]
     Dosage: UNK
  8. TRIHEXYPHENIDYL HCL [Concomitant]
     Indication: PARKINSON'S DISEASE
     Dosage: UNK
  9. MELATONIN [Concomitant]
     Dosage: UNK
  10. VITAMIN D [Concomitant]
     Dosage: UNK

REACTIONS (6)
  - ARTHRALGIA [None]
  - MUSCLE DISORDER [None]
  - MUSCULAR WEAKNESS [None]
  - NEUROPATHY PERIPHERAL [None]
  - PAIN IN EXTREMITY [None]
  - PARAESTHESIA [None]
